FAERS Safety Report 7964206-7 (Version None)
Quarter: 2011Q4

REPORT INFORMATION
  Report Type: 
  Country: None (occurrence: None)
  Receive Date: 20111208
  Receipt Date: 20111125
  Transmission Date: 20120403
  Serious: Yes (Other)
  Sender: FDA-Public Use
  Company Number: JP-SANOFI-AVENTIS-2011SA078896

PATIENT
  Age: 79 Year
  Sex: Male

DRUGS (6)
  1. PLAVIX [Suspect]
     Route: 065
  2. ISOSORBIDE DINITRATE [Concomitant]
  3. PLAVIX [Suspect]
     Route: 065
  4. LOSARTAN POTASSIUM [Concomitant]
  5. ASPIRIN [Concomitant]
  6. CARVEDILOL [Concomitant]

REACTIONS (1)
  - URINARY RETENTION [None]
